FAERS Safety Report 15654142 (Version 1)
Quarter: 2018Q4

REPORT INFORMATION
  Report Type: Spontaneous
  Country: US (occurrence: US)
  Receive Date: 20181125
  Receipt Date: 20181125
  Transmission Date: 20190205
  Serious: Yes (Other)
  Sender: FDA-Public Use
  Company Number: PHHY2018US162470

PATIENT

DRUGS (1)
  1. PAZOPANIB [Suspect]
     Active Substance: PAZOPANIB
     Indication: METASTATIC RENAL CELL CARCINOMA
     Dosage: 400 MG, QD
     Route: 048

REACTIONS (4)
  - Blood disorder [Unknown]
  - Gastrointestinal disorder [Unknown]
  - Lymphatic disorder [Unknown]
  - Cardiovascular disorder [Unknown]
